FAERS Safety Report 8604508-4 (Version None)
Quarter: 2012Q3

REPORT INFORMATION
  Report Type: 
  Country: None (occurrence: None)
  Receive Date: 20120806
  Receipt Date: 20120806
  Transmission Date: 20120928
  Serious: Yes (Hospitalization)
  Sender: FDA-Public Use
  Company Number: None

PATIENT
  Sex: Male

DRUGS (1)
  1. XOLAIR [Suspect]
     Dosage: 375MG Q2WEEKS
     Route: 042
     Dates: start: 20120801

REACTIONS (5)
  - COUGH [None]
  - WHEEZING [None]
  - CHEST DISCOMFORT [None]
  - URTICARIA [None]
  - DYSPNOEA [None]
